FAERS Safety Report 20176663 (Version 1)
Quarter: 2021Q4

REPORT INFORMATION
  Report Type: Spontaneous
  Country: JP (occurrence: JP)
  Receive Date: 20211213
  Receipt Date: 20211213
  Transmission Date: 20220303
  Serious: Yes (Hospitalization, Other)
  Sender: FDA-Public Use
  Company Number: JP-SCIEGENP-2021SCLIT00991

PATIENT
  Age: 74 Year
  Sex: Female

DRUGS (4)
  1. RALOXIFENE HYDROCHLORIDE [Suspect]
     Active Substance: RALOXIFENE HYDROCHLORIDE
     Indication: Osteoporosis
     Route: 065
  2. BENIDIPINE [Concomitant]
     Active Substance: BENIDIPINE
     Indication: Hypertension
  3. PITAVASTATIN [Concomitant]
     Active Substance: PITAVASTATIN
     Indication: Hyperlipidaemia
  4. ALFACALCIDOL [Concomitant]
     Active Substance: ALFACALCIDOL
     Indication: Osteoporosis

REACTIONS (1)
  - Erythema multiforme [Recovered/Resolved]
